FAERS Safety Report 8767843 (Version 2)
Quarter: 2012Q4

REPORT INFORMATION
  Report Type: 
  Country: JP (occurrence: JP)
  Receive Date: 20120905
  Receipt Date: 20120913
  Transmission Date: 20130627
  Serious: Yes (Other)
  Sender: FDA-Public Use
  Company Number: PHHY2012JP075975

PATIENT
  Age: 34 Year
  Sex: Female

DRUGS (1)
  1. IMATINIB [Suspect]
     Indication: ERDHEIM-CHESTER DISEASE
     Dosage: 100 mg, per day
     Route: 048

REACTIONS (3)
  - Enterocolitis [Unknown]
  - Urinary tract infection [Unknown]
  - Drug ineffective [Unknown]
